FAERS Safety Report 20804013 (Version 1)
Quarter: 2022Q2

REPORT INFORMATION
  Report Type: Spontaneous
  Country: US (occurrence: US)
  Receive Date: 20220509
  Receipt Date: 20220509
  Transmission Date: 20220721
  Serious: No
  Sender: FDA-Public Use
  Company Number: US-PFIZER INC-202200433868

PATIENT
  Sex: Male

DRUGS (4)
  1. DOCETAXEL [Suspect]
     Active Substance: DOCETAXEL
     Dosage: 6 UNK (HAD SIX DOCETAXEL TREATMENTS A YEAR AGO
  2. ORGOVYX [Suspect]
     Active Substance: RELUGOLIX
     Indication: Prostate cancer metastatic
     Dosage: UNK
     Dates: start: 202104
  3. PREDNISONE [Concomitant]
     Active Substance: PREDNISONE
     Dosage: UNK
  4. ERLEADA [Concomitant]
     Active Substance: APALUTAMIDE
     Dosage: UNK

REACTIONS (2)
  - Weight increased [Unknown]
  - Feeling abnormal [Unknown]
